FAERS Safety Report 24528537 (Version 1)
Quarter: 2024Q4

REPORT INFORMATION
  Report Type: Spontaneous
  Country: US (occurrence: None)
  Receive Date: 20241018
  Receipt Date: 20241018
  Transmission Date: 20250115
  Serious: Yes (Hospitalization)
  Sender: Public
  Company Number: None

PATIENT
  Sex: Female

DRUGS (4)
  1. OPSUMIT [Suspect]
     Active Substance: MACITENTAN
     Indication: Pulmonary arterial hypertension
     Dosage: FREQUENCY : DAILY;?
     Route: 048
     Dates: start: 202204
  2. SILDENAFIL CITRATE [Concomitant]
  3. REMUNITY CART W/FILL AID [Concomitant]
  4. REMODULIN MDV [Concomitant]

REACTIONS (3)
  - Pericardial effusion [None]
  - Intra-abdominal fluid collection [None]
  - Therapy cessation [None]
